FAERS Safety Report 7278319-9 (Version None)
Quarter: 2011Q1

REPORT INFORMATION
  Report Type: 
  Country: None (occurrence: None)
  Receive Date: 20110207
  Receipt Date: 20110124
  Transmission Date: 20110831
  Serious: Yes (Other)
  Sender: FDA-Public Use
  Company Number: IE-ELI_LILLY_AND_COMPANY-IE201011001056

PATIENT
  Age: 8 Year
  Sex: Male

DRUGS (4)
  1. STRATTERA [Suspect]
     Dosage: 25 MG, UNK
  2. METHYLPHENIDATE [Concomitant]
     Dosage: 20 MG, UNK
  3. STRATTERA [Suspect]
     Indication: ATTENTION DEFICIT/HYPERACTIVITY DISORDER
     Dosage: 18 MG, UNK
  4. STRATTERA [Suspect]
     Dosage: 1 D/F, UNK

REACTIONS (2)
  - BUNDLE BRANCH BLOCK [None]
  - TACHYCARDIA [None]
